FAERS Safety Report 25690347 (Version 1)
Quarter: 2025Q3

REPORT INFORMATION
  Report Type: Spontaneous
  Country: US (occurrence: None)
  Receive Date: 20250816
  Receipt Date: 20250816
  Transmission Date: 20251021
  Serious: No
  Sender: FDA-CTU
  Company Number: None

PATIENT
  Age: 67 Year
  Sex: Female
  Weight: 79.1 kg

DRUGS (2)
  1. SPRYCEL [Suspect]
     Active Substance: DASATINIB
     Dates: end: 20230527
  2. PREDNISONE [Suspect]
     Active Substance: PREDNISONE
     Dates: end: 20230527

REACTIONS (6)
  - Disseminated intravascular coagulation [None]
  - Platelet transfusion [None]
  - Transfusion [None]
  - Treatment delayed [None]
  - Catheter site haemorrhage [None]
  - Mouth haemorrhage [None]

NARRATIVE: CASE EVENT DATE: 20230528
